FAERS Safety Report 5246206-3 (Version None)
Quarter: 2007Q1

REPORT INFORMATION
  Report Type: 
  Country: None (occurrence: None)
  Receive Date: 20070220
  Receipt Date: 20070205
  Transmission Date: 20070707
  Serious: Yes (Death)
  Sender: FDA-Public Use
  Company Number: 2006JP000495

PATIENT
  Age: 43 Year
  Sex: Female

DRUGS (3)
  1. PROGRAF [Suspect]
     Indication: CORD BLOOD TRANSPLANT THERAPY
  2. ACYCLOVIR [Concomitant]
  3. G-CSF (GRANULOCYTE COLONY STIMULATING FACTOR) [Concomitant]

REACTIONS (9)
  - BONE MARROW FAILURE [None]
  - DRUG INEFFECTIVE [None]
  - EPSTEIN-BARR VIRUS INFECTION [None]
  - GASTROINTESTINAL HAEMORRHAGE [None]
  - HEPATIC FAILURE [None]
  - HEPATOSPLENOMEGALY [None]
  - HERPES ZOSTER [None]
  - HISTIOCYTOSIS HAEMATOPHAGIC [None]
  - SERUM FERRITIN INCREASED [None]
